FAERS Safety Report 21299145 (Version 1)
Quarter: 2022Q3

REPORT INFORMATION
  Report Type: Spontaneous
  Country: CN (occurrence: CN)
  Receive Date: 20220906
  Receipt Date: 20220906
  Transmission Date: 20221027
  Serious: Yes (Other)
  Sender: FDA-Public Use
  Company Number: None

PATIENT
  Age: 64 Year
  Sex: Female
  Weight: 55 kg

DRUGS (19)
  1. CYCLOPHOSPHAMIDE [Suspect]
     Active Substance: CYCLOPHOSPHAMIDE
     Indication: Non-Hodgkin^s lymphoma
     Dosage: 1.2 G, QD, PD-1 INHIBITOR + RCHOP CHEMOTHERAPY FOR CYCLE 1
     Route: 041
     Dates: start: 20220628
  2. CYCLOPHOSPHAMIDE [Suspect]
     Active Substance: CYCLOPHOSPHAMIDE
     Dosage: 960 MG, QD, DILUTED WITH 0.9% SODIUM CHLORIDE INJECTION 100 ML, PD-1 INHIBITOR + RCHOP CHEMOTHERAPY
     Route: 041
     Dates: start: 20220726, end: 20220726
  3. SODIUM CHLORIDE [Suspect]
     Active Substance: SODIUM CHLORIDE
     Indication: Medication dilution
     Dosage: 100 ML, QD, DILUTED IN TISLELIZUMAB, PD-1 INHIBITOR + RCHOP CHEMOTHERAPY FOR CYCLE 2
     Route: 041
     Dates: start: 20220725, end: 20220725
  4. SODIUM CHLORIDE [Suspect]
     Active Substance: SODIUM CHLORIDE
     Dosage: 100 ML, QD, DILUTED IN CYCLOPHOSPHAMIDE, PD-1 INHIBITOR + RCHOP CHEMOTHERAPY FOR CYCLE 2
     Route: 041
     Dates: start: 20220726, end: 20220726
  5. SODIUM CHLORIDE [Suspect]
     Active Substance: SODIUM CHLORIDE
     Dosage: 100 ML, QD, INTRA-PUMP INJECTION, DILUTED IN RITUXIMAB INJECTION 0.1 G, PD-1 INHIBITOR + RCHOP CHEMO
     Route: 050
     Dates: start: 20220726, end: 20220726
  6. SODIUM CHLORIDE [Suspect]
     Active Substance: SODIUM CHLORIDE
     Dosage: 250 ML, QD, INTRA-PUMP INJECTION, DILUTED IN RITUXIMAB INJECTION 0.5 G, PD-1 INHIBITOR + RCHOP CHEMO
     Route: 050
     Dates: start: 20220726, end: 20220726
  7. SODIUM CHLORIDE [Suspect]
     Active Substance: SODIUM CHLORIDE
     Dosage: 30 ML, QD, DILUTED IN VINDESINE SULFATE, PD-1 INHIBITOR + RCHOP CHEMOTHERAPY FOR CYCLE 2
     Route: 040
     Dates: start: 20220726, end: 20220726
  8. DEXTROSE MONOHYDRATE [Suspect]
     Active Substance: DEXTROSE MONOHYDRATE
     Indication: Medication dilution
     Dosage: 150 ML, QD, INTRA-PUMP INJECTION, DILUTED IN DOXORUBICIN HYDROCHLORIDE LIPOSOME, PD-1 INHIBITOR + RC
     Route: 050
     Dates: start: 20220726, end: 20220726
  9. RITUXIMAB [Suspect]
     Active Substance: RITUXIMAB
     Indication: Non-Hodgkin^s lymphoma
     Dosage: 0.6 G, QD, INTRA-PUMP INJECTION, PD-1 INHIBITOR + RCHOP CHEMOTHERAPY FOR CYCLE 1
     Route: 050
     Dates: start: 20220628
  10. RITUXIMAB [Suspect]
     Active Substance: RITUXIMAB
     Dosage: 0.1 G, QD, INTRA-PUMP INJECTION, DILUTED WITH 0.9% SODIUM CHLORIDE INJECTION 100 ML, PD-1 INHIBITOR
     Route: 050
     Dates: start: 20220726, end: 20220726
  11. RITUXIMAB [Suspect]
     Active Substance: RITUXIMAB
     Dosage: 0.5 G, QD, INTRA-PUMP INJECTION, DILUTED WITH 0.9% SODIUM CHLORIDE INJECTION 250 ML, PD-1 INHIBITOR
     Route: 050
     Dates: start: 20220726, end: 20220726
  12. TISLELIZUMAB [Suspect]
     Active Substance: TISLELIZUMAB
     Indication: Non-Hodgkin^s lymphoma
     Dosage: 200 MG, QD, PD-1 INHIBITOR + RCHOP CHEMOTHERAPY FOR CYCLE 1
     Route: 041
     Dates: start: 20220628
  13. TISLELIZUMAB [Suspect]
     Active Substance: TISLELIZUMAB
     Dosage: 200 MG, QD, DILUTED WITH 0.9% SODIUM CHLORIDE INJECTION 100 ML, PD-1 INHIBITOR + RCHOP CHEMOTHERAPY
     Route: 041
     Dates: start: 20220725, end: 20220725
  14. VINDESINE SULFATE [Suspect]
     Active Substance: VINDESINE SULFATE
     Indication: Non-Hodgkin^s lymphoma
     Dosage: 4 MG, QD, PD-1 INHIBITOR + RCHOP CHEMOTHERAPY FOR CYCLE 1
     Route: 040
     Dates: start: 20220628
  15. VINDESINE SULFATE [Suspect]
     Active Substance: VINDESINE SULFATE
     Dosage: 4 MG, QD, DILUTED WITH 0.9% SODIUM CHLORIDE INJECTION 30 ML, PD-1 INHIBITOR + RCHOP CHEMOTHERAPY FOR
     Route: 040
     Dates: start: 20220726, end: 20220726
  16. DOXORUBICIN HYDROCHLORIDE [Suspect]
     Active Substance: DOXORUBICIN HYDROCHLORIDE
     Indication: Non-Hodgkin^s lymphoma
     Dosage: 55 MG, QD, INTRA-PUMP INJECTION, PD-1 INHIBITOR + RCHOP CHEMOTHERAPY FOR CYCLE 1
     Route: 050
     Dates: start: 20220628
  17. DOXORUBICIN HYDROCHLORIDE [Suspect]
     Active Substance: DOXORUBICIN HYDROCHLORIDE
     Dosage: 44 MG, QD, INTRA-PUMP INJECTION, DILUTED WITH 5% GLUCOSE INJECTION 150 ML, PD-1 INHIBITOR + RCHOP CH
     Route: 050
     Dates: start: 20220726, end: 20220726
  18. PREDNISONE [Suspect]
     Active Substance: PREDNISONE
     Indication: Non-Hodgkin^s lymphoma
     Dosage: PD-1 INHIBITOR + RCHOP CHEMOTHERAPY FOR CYCLE 1
     Route: 065
     Dates: start: 20220628, end: 20220628
  19. PREDNISONE [Suspect]
     Active Substance: PREDNISONE
     Dosage: PD-1 INHIBITOR + RCHOP FOR CYCLE 2
     Route: 065
     Dates: start: 20220725, end: 20220725

REACTIONS (3)
  - Myelosuppression [Recovering/Resolving]
  - Granulocytopenia [Recovering/Resolving]
  - Infection [Recovering/Resolving]

NARRATIVE: CASE EVENT DATE: 20220807
